FAERS Safety Report 6313593-4 (Version None)
Quarter: 2009Q3

REPORT INFORMATION
  Report Type: 
  Country: None (occurrence: None)
  Receive Date: 20090814
  Receipt Date: 20090731
  Transmission Date: 20100115
  Serious: Yes (Hospitalization)
  Sender: FDA-Public Use
  Company Number: 1000008150

PATIENT
  Age: 17 Year
  Sex: Male

DRUGS (2)
  1. CITALOPRAM HYDROBROMIDE [Suspect]
     Indication: ANXIETY DISORDER
     Dosage: 20 MG (20 MG, 1  IN 1 D), ORAL
     Route: 048
     Dates: start: 20090708
  2. VODKA [Suspect]
     Dosage: 1 GLASS
     Dates: start: 20090712, end: 20090712

REACTIONS (2)
  - COMA [None]
  - DRUG INTERACTION [None]
